FAERS Safety Report 9705756 (Version 2)
Quarter: 2015Q3

REPORT INFORMATION
  Report Type: Spontaneous
  Country: US (occurrence: US)
  Receive Date: 20131122
  Receipt Date: 20150803
  Transmission Date: 20151125
  Serious: No
  Sender: FDA-Public Use
  Company Number: US-GILEAD-2008-0017951

PATIENT
  Age: 33 Year
  Sex: Female
  Weight: 61.69 kg

DRUGS (16)
  1. LETAIRIS [Suspect]
     Active Substance: AMBRISENTAN
     Indication: PULMONARY ARTERIAL HYPERTENSION
     Route: 048
     Dates: start: 20080804
  2. LACTULOSE. [Concomitant]
     Active Substance: LACTULOSE
     Dosage: AS DIRECTED
     Route: 048
  3. PLENDIL [Concomitant]
     Active Substance: FELODIPINE
     Dosage: AS DIRECTED
     Route: 048
  4. CLARITIN [Concomitant]
     Active Substance: LORATADINE
     Dosage: AS DIRECTED
     Route: 048
  5. PREDNISONE. [Concomitant]
     Active Substance: PREDNISONE
     Dosage: AS DIRECTED
     Route: 048
  6. ZOLOFT [Concomitant]
     Active Substance: SERTRALINE HYDROCHLORIDE
     Dosage: AS DIRECTED
     Route: 048
  7. ATIVAN [Concomitant]
     Active Substance: LORAZEPAM
     Dosage: AS DIRECTED
     Route: 048
  8. CYTOXAN [Concomitant]
     Active Substance: CYCLOPHOSPHAMIDE
     Dosage: AS DIRECTED
  9. DIFLUCAN [Concomitant]
     Active Substance: FLUCONAZOLE
     Dosage: AS DIRECTED
     Route: 048
  10. VALTREX [Concomitant]
     Active Substance: VALACYCLOVIR HYDROCHLORIDE
     Dosage: AS DIRECTED
     Route: 048
  11. PYRIDIUM [Concomitant]
     Active Substance: PHENAZOPYRIDINE
     Dosage: AS DIRECTED
     Route: 048
  12. HYDROMORPHONE [Concomitant]
     Active Substance: HYDROMORPHONE
     Dosage: AS DIRECTED
  13. SENOKOT [Concomitant]
     Active Substance: SENNOSIDES
     Dosage: AS DIRECTED
     Route: 048
  14. COUMADIN [Concomitant]
     Active Substance: WARFARIN SODIUM
     Dosage: AS DIRECTED
     Route: 048
  15. ZOFRAN [Concomitant]
     Active Substance: ONDANSETRON HYDROCHLORIDE
     Dosage: AS DIRECTED
     Route: 048
  16. NEXIUM [Concomitant]
     Active Substance: ESOMEPRAZOLE MAGNESIUM
     Dosage: AS DIRECTED
     Route: 048

REACTIONS (3)
  - Chest discomfort [None]
  - Fluid retention [None]
  - Headache [None]
